FAERS Safety Report 8971494 (Version 1)
Quarter: 2012Q4

REPORT INFORMATION
  Report Type: 
  Country: BR (occurrence: BR)
  Receive Date: 20121217
  Receipt Date: 20121217
  Transmission Date: 20130627
  Serious: Yes (Other)
  Sender: FDA-Public Use
  Company Number: BR-PFIZER INC-2012313149

PATIENT
  Age: 82 Year
  Sex: Female

DRUGS (1)
  1. DETRUSITOL LA [Suspect]
     Indication: BLADDER DISORDER
     Dosage: 4 mg, 1x/day
     Route: 048

REACTIONS (3)
  - Heart rate irregular [Unknown]
  - Confusional state [Unknown]
  - Malaise [Unknown]
